FAERS Safety Report 15883654 (Version 2)
Quarter: 2019Q1

REPORT INFORMATION
  Report Type: Spontaneous
  Country: US (occurrence: US)
  Receive Date: 20190129
  Receipt Date: 20190202
  Transmission Date: 20190417
  Serious: Yes (Other)
  Sender: FDA-Public Use
  Company Number: US-DRREDDYS-USA/USA/19/0107264

PATIENT
  Age: 62 Year
  Sex: Female

DRUGS (8)
  1. CYTARABINE. [Suspect]
     Active Substance: CYTARABINE
     Dosage: 2 GM/M2 DAYS 1 TO 5
     Route: 042
  2. CYTARABINE. [Suspect]
     Active Substance: CYTARABINE
     Dosage: 1.5 GM/M2 IV Q12 HOURS DAYS 1, 3 AND 5.
     Route: 042
  3. LENALIDOMIDE [Suspect]
     Active Substance: LENALIDOMIDE
     Indication: ACUTE MYELOID LEUKAEMIA
     Route: 065
  4. LENALIDOMIDE [Suspect]
     Active Substance: LENALIDOMIDE
     Dosage: FOLLOWED BY MAINTENANCE AT 10 MG DAILY (NCT01578954)
  5. CLADRIBINE. [Suspect]
     Active Substance: CLADRIBINE
     Indication: ACUTE MYELOID LEUKAEMIA
     Dosage: 5 MG/M2 DAYS 1 TO 5
     Route: 042
  6. AZACITIDINE. [Suspect]
     Active Substance: AZACITIDINE
     Indication: ACUTE MYELOID LEUKAEMIA
     Dosage: 75 MG/M2 FOR 1-7 DAYS
     Route: 058
  7. CYTARABINE. [Suspect]
     Active Substance: CYTARABINE
     Indication: ACUTE MYELOID LEUKAEMIA
     Dosage: 100 MG/M2, FOR 1 TO 7 DAYS
     Route: 042
  8. IDARUBICIN [Suspect]
     Active Substance: IDARUBICIN
     Indication: ACUTE MYELOID LEUKAEMIA
     Dosage: 12 MG/M2 IV DAYS 1-3
     Route: 042

REACTIONS (6)
  - Acute lymphocytic leukaemia [Unknown]
  - Leukaemia cutis [Unknown]
  - Leukocytosis [Unknown]
  - Disease progression [Unknown]
  - Basophilia [Unknown]
  - Rash erythematous [Unknown]
